FAERS Safety Report 11458784 (Version 1)
Quarter: 2015Q3

REPORT INFORMATION
  Report Type: Spontaneous
  Country: US (occurrence: US)
  Receive Date: 20150904
  Receipt Date: 20150904
  Transmission Date: 20151125
  Serious: Yes (Death)
  Sender: FDA-Public Use
  Company Number: US-ASTELLAS-2015US031862

PATIENT
  Age: 81 Year
  Sex: Male

DRUGS (1)
  1. PROGRAF [Suspect]
     Active Substance: TACROLIMUS\TACROLIMUS ANHYDROUS
     Indication: LIVER TRANSPLANT
     Dosage: 2 CAPSULES (0.5 MG) TWICE DAILY
     Route: 048
     Dates: start: 20130207, end: 20150828

REACTIONS (1)
  - Death [Fatal]

NARRATIVE: CASE EVENT DATE: 20150829
